FAERS Safety Report 13904772 (Version 1)
Quarter: 2017Q3

REPORT INFORMATION
  Report Type: Spontaneous
  Country: US (occurrence: US)
  Receive Date: 20170824
  Receipt Date: 20170824
  Transmission Date: 20171127
  Serious: Yes (Other)
  Sender: FDA-Public Use
  Company Number: None

PATIENT
  Age: 55 Year
  Sex: Female
  Weight: 112.5 kg

DRUGS (10)
  1. OXYMOPHONE [Concomitant]
  2. NORTRIPTYLINE [Concomitant]
     Active Substance: NORTRIPTYLINE
  3. ZOCOR [Concomitant]
     Active Substance: SIMVASTATIN
  4. EXCEDERIN [Concomitant]
  5. MELOXICAM. [Suspect]
     Active Substance: MELOXICAM
     Indication: ARTHRALGIA
     Dosage: ?          QUANTITY:90 TABLET(S); EVERY 12 HOURS ORAL?
     Route: 048
     Dates: start: 20170530, end: 20170821
  6. MULTI VITAMIN-CENTRUM [Concomitant]
  7. LORIZAPAN [Concomitant]
  8. PRINIVIL [Concomitant]
     Active Substance: LISINOPRIL
  9. EFFEXOR [Concomitant]
     Active Substance: VENLAFAXINE HYDROCHLORIDE
  10. ACTALIN [Concomitant]

REACTIONS (5)
  - Pain [None]
  - Myalgia [None]
  - Product substitution issue [None]
  - Product quality issue [None]
  - Arthralgia [None]

NARRATIVE: CASE EVENT DATE: 20170715
